FAERS Safety Report 6279245-4 (Version None)
Quarter: 2009Q3

REPORT INFORMATION
  Report Type: 
  Country: None (occurrence: None)
  Receive Date: 20090720
  Receipt Date: 20090720
  Transmission Date: 20100115
  Serious: Yes (Other)
  Sender: FDA-Public Use
  Company Number: None

PATIENT
  Age: 36 Year
  Sex: Female
  Weight: 56.246 kg

DRUGS (1)
  1. TEMAZEPAM [Suspect]
     Indication: INSOMNIA
     Dosage: 30MG EVERY NIGHT PO
     Route: 048
     Dates: start: 20090103, end: 20090717

REACTIONS (7)
  - AMNESIA [None]
  - CLUMSINESS [None]
  - DYSARTHRIA [None]
  - FALL [None]
  - MENTAL IMPAIRMENT [None]
  - SEDATION [None]
  - VISION BLURRED [None]
